FAERS Safety Report 4405609-7 (Version None)
Quarter: 2004Q3

REPORT INFORMATION
  Report Type: 
  Country: None (occurrence: None)
  Receive Date: 20040723
  Receipt Date: 20031016
  Transmission Date: 20050211
  Serious: No
  Sender: FDA-Public Use
  Company Number: US-GLAXOSMITHKLINE-A0430646A

PATIENT
  Age: 67 Year
  Sex: Female
  Weight: 72.7 kg

DRUGS (5)
  1. AVANDIA [Suspect]
     Dosage: 4MG TWICE PER DAY
     Route: 048
     Dates: start: 20030903, end: 20031001
  2. ZOCOR [Concomitant]
  3. PRINIVIL [Concomitant]
  4. INSULIN [Concomitant]
  5. TRIAMTERENE [Concomitant]

REACTIONS (4)
  - FATIGUE [None]
  - JOINT SWELLING [None]
  - OEDEMA PERIPHERAL [None]
  - WEIGHT INCREASED [None]
